FAERS Safety Report 7501005-4 (Version None)
Quarter: 2011Q2

REPORT INFORMATION
  Report Type: 
  Country: None (occurrence: None)
  Receive Date: 20110524
  Receipt Date: 20100517
  Transmission Date: 20111010
  Serious: No
  Sender: FDA-Public Use
  Company Number: US-NOVEN-ALL1-2010-02862

PATIENT

DRUGS (2)
  1. DAYTRANA [Suspect]
     Dosage: 10 MG, 1X/DAY:QD
     Route: 062
     Dates: start: 20091001
  2. TENEX [Concomitant]
     Dosage: .5 MG, 2X/DAY:BID (1/2 OF 1 MG. TABLET IN MORNING AND 1/2 OF 1 MG. TABLET IN AFTERNOON DAILY)
     Route: 048
     Dates: start: 20091001

REACTIONS (1)
  - APPLICATION SITE IRRITATION [None]
